FAERS Safety Report 13527878 (Version 3)
Quarter: 2017Q3

REPORT INFORMATION
  Report Type: Spontaneous
  Country: US (occurrence: US)
  Receive Date: 20170509
  Receipt Date: 20170731
  Transmission Date: 20171127
  Serious: No
  Sender: FDA-Public Use
  Company Number: US-PFIZER INC-2017198767

PATIENT
  Age: 59 Year
  Sex: Female

DRUGS (2)
  1. LYRICA [Suspect]
     Active Substance: PREGABALIN
     Indication: FIBROMYALGIA
     Dosage: 50 MG, 3X/DAY
     Dates: start: 201702, end: 2017
  2. LYRICA [Suspect]
     Active Substance: PREGABALIN
     Dosage: 100 MG, 3X/DAY (50 MG, 2 CAPSULES PER TAKE)
     Dates: start: 2017

REACTIONS (8)
  - Feeling abnormal [Recovered/Resolved]
  - Product use issue [Unknown]
  - Fatigue [Unknown]
  - Intentional product use issue [Recovered/Resolved]
  - Pain [Unknown]
  - Headache [Unknown]
  - Drug ineffective [Unknown]
  - Pain in extremity [Unknown]

NARRATIVE: CASE EVENT DATE: 2017
